FAERS Safety Report 6739731-7 (Version None)
Quarter: 2010Q2

REPORT INFORMATION
  Report Type: 
  Country: None (occurrence: None)
  Receive Date: 20100525
  Receipt Date: 20090414
  Transmission Date: 20101027
  Serious: Yes (Other)
  Sender: FDA-Public Use
  Company Number: US-BAYER-200816958NA

PATIENT
  Age: 49 Year
  Sex: Female
  Weight: 73 kg

DRUGS (33)
  1. MAGNEVIST [Suspect]
     Route: 042
  2. OMNISCAN [Suspect]
     Indication: NUCLEAR MAGNETIC RESONANCE IMAGING
     Route: 042
     Dates: start: 20060117, end: 20060117
  3. OPTIMARK [Suspect]
     Route: 042
  4. MULTIHANCE [Suspect]
     Route: 042
  5. PROHANCE [Suspect]
     Route: 042
  6. ADRIAMYCIN PFS [Concomitant]
  7. ANTIVERT [Concomitant]
  8. ARIMIDEX [Concomitant]
  9. ASPIRIN [Concomitant]
  10. AZATHIOPRINE SODIUM [Concomitant]
  11. BENADRYL [Concomitant]
  12. CALCIJEX [Concomitant]
  13. CYTOXAN [Concomitant]
  14. EPOGEN [Concomitant]
     Dosage: WITH DIALYSIS
     Route: 042
     Dates: start: 20040101
  15. HYDRALAZINE HCL [Concomitant]
  16. LISINOPRIL [Concomitant]
  17. LOPRESSOR [Concomitant]
  18. NEPHROVITE [Concomitant]
  19. NORVASC [Concomitant]
  20. PHENERGAN [Concomitant]
  21. PHOSLO [Concomitant]
     Dosage: TOTAL DAILY DOSE: 9 DF
     Route: 048
  22. PREDNISONE [Concomitant]
  23. PRILOSEC [Concomitant]
  24. PROTONIX [Concomitant]
  25. REGLAN [Concomitant]
  26. RENAGEL [Concomitant]
     Dosage: UNKNOWN; DOSE INCREASED TO 3 TABS TID MAY 2007
  27. SANDIMMUNE [Concomitant]
     Dosage: TOTAL DAILY DOSE: 350 MG
  28. SENSIPAR [Concomitant]
  29. SODIUM THIOSULFATE [Concomitant]
  30. TAXOL [Concomitant]
  31. VENOFER [Concomitant]
     Dosage: WITH DIALYSIS
     Route: 040
  32. ZEMPLAR [Concomitant]
  33. ZOCOR [Concomitant]

REACTIONS (29)
  - ANXIETY [None]
  - DRY SKIN [None]
  - EMOTIONAL DISTRESS [None]
  - ERYTHEMA [None]
  - FIBROSIS [None]
  - GENERAL PHYSICAL HEALTH DETERIORATION [None]
  - INJURY [None]
  - JOINT RANGE OF MOTION DECREASED [None]
  - MOBILITY DECREASED [None]
  - NEPHROGENIC SYSTEMIC FIBROSIS [None]
  - NEURALGIA [None]
  - PAIN [None]
  - PAIN IN EXTREMITY [None]
  - PRURITUS [None]
  - RASH [None]
  - SCAR [None]
  - SKIN BURNING SENSATION [None]
  - SKIN DISCOLOURATION [None]
  - SKIN DISORDER [None]
  - SKIN EXFOLIATION [None]
  - SKIN FIBROSIS [None]
  - SKIN FISSURES [None]
  - SKIN HYPERPIGMENTATION [None]
  - SKIN HYPERTROPHY [None]
  - SKIN INDURATION [None]
  - SKIN LESION [None]
  - SKIN PLAQUE [None]
  - SKIN TIGHTNESS [None]
  - SWELLING [None]
